FAERS Safety Report 6892000-7 (Version None)
Quarter: 2010Q3

REPORT INFORMATION
  Report Type: 
  Country: None (occurrence: None)
  Receive Date: 20100731
  Receipt Date: 20071228
  Transmission Date: 20110219
  Serious: No
  Sender: FDA-Public Use
  Company Number: US-PFIZER INC-2008000514

PATIENT
  Sex: Male
  Weight: 90.9 kg

DRUGS (2)
  1. NEURONTIN [Suspect]
     Indication: TRIGEMINAL NEURALGIA
     Dates: start: 20071201
  2. NEURONTIN [Suspect]
     Indication: ARTHRALGIA

REACTIONS (1)
  - PAIN [None]
